FAERS Safety Report 6509766-8 (Version None)
Quarter: 2009Q4

REPORT INFORMATION
  Report Type: 
  Country: None (occurrence: None)
  Receive Date: 20091221
  Receipt Date: 20091221
  Transmission Date: 20100525
  Serious: Yes (Other)
  Sender: FDA-Public Use
  Company Number: None

PATIENT
  Age: 37 Year
  Sex: Female
  Weight: 63.6 kg

DRUGS (4)
  1. TOPAMAX [Suspect]
     Indication: MIGRAINE
     Dosage: 25MG QD-BID PO
     Route: 048
     Dates: start: 20090301, end: 20090601
  2. MAXALT [Concomitant]
  3. FIORICET PRN [Concomitant]
  4. LEVOXYL [Concomitant]

REACTIONS (3)
  - COGNITIVE DISORDER [None]
  - HALLUCINATION [None]
  - SUICIDAL IDEATION [None]
